FAERS Safety Report 13889962 (Version 1)
Quarter: 2017Q3

REPORT INFORMATION
  Report Type: Report from Study
  Country: US (occurrence: US)
  Receive Date: 20170822
  Receipt Date: 20170822
  Transmission Date: 20171127
  Serious: No
  Sender: FDA-Public Use
  Company Number: US-AMGEN-USASL2017124300

PATIENT
  Age: 41 Year
  Sex: Female

DRUGS (1)
  1. ENBREL [Suspect]
     Active Substance: ETANERCEPT
     Indication: RHEUMATOID ARTHRITIS
     Dosage: 50 MG, QWK
     Route: 065
     Dates: start: 20170728

REACTIONS (5)
  - Injection site erythema [Unknown]
  - Injection site urticaria [Unknown]
  - Injection site swelling [Unknown]
  - Fatigue [Recovered/Resolved]
  - Injection site pruritus [Recovering/Resolving]

NARRATIVE: CASE EVENT DATE: 2017
